FAERS Safety Report 8357168-4 (Version None)
Quarter: 2012Q2

REPORT INFORMATION
  Report Type: 
  Country: None (occurrence: None)
  Receive Date: 20120514
  Receipt Date: 20120510
  Transmission Date: 20120825
  Serious: Yes (Other)
  Sender: FDA-Public Use
  Company Number: US-PFIZER INC-2012054125

PATIENT
  Sex: Male
  Weight: 77.098 kg

DRUGS (14)
  1. XANAX [Suspect]
     Dosage: UNK
  2. NITROSTAT [Suspect]
     Dosage: UNK
  3. NITROSTAT [Concomitant]
     Dosage: UNK
  4. ESCITALOPRAM OXALATE [Suspect]
     Dosage: UNK
  5. QUINAPRIL [Concomitant]
     Dosage: UNK, DAILY
  6. PLAVIX [Concomitant]
     Dosage: 75 MG, UNK
  7. ALPRAZOLAM [Suspect]
     Dosage: UNK
     Dates: start: 20090501
  8. ASPIRIN [Concomitant]
     Dosage: 81 MG, UNK
  9. COREG [Concomitant]
     Indication: HYPERTENSION
     Dosage: 25 MG, UNK
  10. LIPITOR [Suspect]
     Indication: MYOCARDIAL INFARCTION
     Dosage: 80 MG, DAILY
     Dates: start: 20090507
  11. XANAX [Concomitant]
     Dosage: 2 MG, 3X/DAY
  12. LIPITOR [Suspect]
     Indication: BLOOD CHOLESTEROL INCREASED
  13. LEXAPRO [Suspect]
     Dosage: UNK
  14. CARVEDILOL [Suspect]
     Indication: HYPERTENSION
     Dosage: UNK

REACTIONS (13)
  - INFLUENZA LIKE ILLNESS [None]
  - PYREXIA [None]
  - HYPERSENSITIVITY [None]
  - EATING DISORDER [None]
  - DRUG INTOLERANCE [None]
  - WEIGHT DECREASED [None]
  - BACK PAIN [None]
  - NECK PAIN [None]
  - HEADACHE [None]
  - DIARRHOEA [None]
  - BIPOLAR DISORDER [None]
  - ARTHRALGIA [None]
  - PAIN IN EXTREMITY [None]
